FAERS Safety Report 12867106 (Version 2)
Quarter: 2019Q1

REPORT INFORMATION
  Report Type: Spontaneous
  Country: US (occurrence: US)
  Receive Date: 20161020
  Receipt Date: 20190201
  Transmission Date: 20190417
  Serious: No
  Sender: FDA-Public Use
  Company Number: US-JAZZ-2016-US-014806

PATIENT
  Sex: Female

DRUGS (22)
  1. AMBIEN [Concomitant]
     Active Substance: ZOLPIDEM TARTRATE
  2. XYREM [Suspect]
     Active Substance: SODIUM OXYBATE
     Indication: NARCOLEPSY
     Dosage: 2.25 G, BID
     Route: 048
     Dates: start: 201307, end: 201308
  3. ARMOUR THYROID [Concomitant]
     Active Substance: THYROID, PORCINE
  4. CLONAZEPAM. [Concomitant]
     Active Substance: CLONAZEPAM
  5. RITALIN [Concomitant]
     Active Substance: METHYLPHENIDATE HYDROCHLORIDE
  6. HYDROCODONE BITARTRATE AND ACETAMINOPHEN [Concomitant]
     Active Substance: ACETAMINOPHEN\HYDROCODONE BITARTRATE
  7. OPIODUR [Concomitant]
  8. VIVELLE-DOT [Concomitant]
     Active Substance: ESTRADIOL
  9. PROGESTERONE. [Concomitant]
     Active Substance: PROGESTERONE
  10. NATURE-THROID [Concomitant]
     Active Substance: THYROID, PORCINE
  11. XYREM [Suspect]
     Active Substance: SODIUM OXYBATE
     Dosage: 4.5 G, BID
     Route: 048
     Dates: start: 201309
  12. MIGRA [Concomitant]
  13. CYTOMEL [Concomitant]
     Active Substance: LIOTHYRONINE SODIUM
  14. LORAZEPAM. [Concomitant]
     Active Substance: LORAZEPAM
  15. RIZATRIPTAN BENZOATE. [Concomitant]
     Active Substance: RIZATRIPTAN BENZOATE
  16. ASCORBIC ACID. [Concomitant]
     Active Substance: ASCORBIC ACID
  17. FISH OIL [Concomitant]
     Active Substance: FISH OIL
  18. XYREM [Suspect]
     Active Substance: SODIUM OXYBATE
     Indication: CATAPLEXY
     Dosage: DOSE ADJUSTMENTS
     Route: 048
     Dates: start: 201308, end: 201309
  19. DEPLIN [Concomitant]
     Active Substance: LEVOMEFOLATE CALCIUM
  20. SUMATRIPTAN. [Concomitant]
     Active Substance: SUMATRIPTAN
  21. MAGNESIUM OXIDE. [Concomitant]
     Active Substance: MAGNESIUM OXIDE
  22. LEXAPRO [Concomitant]
     Active Substance: ESCITALOPRAM OXALATE

REACTIONS (2)
  - Pre-existing condition improved [Unknown]
  - Therapeutic response unexpected [Unknown]
